FAERS Safety Report 13023964 (Version 2)
Quarter: 2017Q1

REPORT INFORMATION
  Report Type: Spontaneous
  Country: DE (occurrence: DE)
  Receive Date: 20161213
  Receipt Date: 20170109
  Transmission Date: 20170428
  Serious: Yes (Hospitalization)
  Sender: FDA-Public Use
  Company Number: DE-JNJFOC-20161210098

PATIENT
  Sex: Female

DRUGS (4)
  1. QUETIAPIN [Suspect]
     Active Substance: QUETIAPINE
     Indication: SCHIZOPHRENIA
     Dosage: 0-0-600
     Route: 065
  2. CLOZAPIN [Concomitant]
     Active Substance: CLOZAPINE
     Indication: PRODUCT USED FOR UNKNOWN INDICATION
     Dosage: 60-0-0-0
     Route: 065
  3. XEPLION [Suspect]
     Active Substance: PALIPERIDONE PALMITATE
     Indication: SCHIZOPHRENIA
     Route: 030
     Dates: start: 2013
  4. ZIPRASIDON [Concomitant]
     Active Substance: ZIPRASIDONE HYDROCHLORIDE
     Indication: SCHIZOPHRENIA
     Dosage: 60-0-0-0
     Route: 065

REACTIONS (4)
  - Blood creatine phosphokinase increased [Recovered/Resolved]
  - C-reactive protein increased [Recovered/Resolved]
  - Catatonia [Recovered/Resolved]
  - Pyrexia [Recovered/Resolved]
